FAERS Safety Report 8095348-6 (Version None)
Quarter: 2012Q1

REPORT INFORMATION
  Report Type: 
  Country: None (occurrence: None)
  Receive Date: 20120126
  Receipt Date: 20120110
  Transmission Date: 20120608
  Serious: Yes (Other)
  Sender: FDA-Public Use
  Company Number: FK201200123

PATIENT
  Age: 8 Year
  Sex: Female

DRUGS (2)
  1. IFOSFAMIDE [Suspect]
     Indication: BONE SARCOMA
  2. MESNA [Suspect]
     Indication: BONE SARCOMA

REACTIONS (2)
  - ANGIOEDEMA [None]
  - RASH PAPULAR [None]
